FAERS Safety Report 9304257 (Version 1)
Quarter: 2013Q2

REPORT INFORMATION
  Report Type: Other
  Country: GB (occurrence: GB)
  Receive Date: 20130522
  Receipt Date: 20130522
  Transmission Date: 20140414
  Serious: Yes (Life-Threatening, Other)
  Sender: FDA-Public Use
  Company Number: GB-WATSON-2013-08744

PATIENT
  Age: 58 Year
  Sex: Female

DRUGS (4)
  1. INDAPAMIDE (UNKNOWN) [Suspect]
     Indication: HYPERTENSION
     Dosage: 1.5 MG, UNKNOWN
     Route: 048
     Dates: start: 20111026, end: 20120904
  2. RAMIPRIL A [Concomitant]
     Indication: HYPERTENSION
     Dosage: 10 MG, UNKNOWN
     Route: 065
     Dates: start: 20100610
  3. ARIMIDEX [Concomitant]
     Indication: BREAST CANCER
     Dosage: 1 MG, UNKNOWN
     Route: 065
     Dates: start: 20100407
  4. ALENDRONIC ACID                    /01220302/ [Concomitant]
     Indication: OSTEOPOROSIS PROPHYLAXIS
     Dosage: UNK
     Route: 065
     Dates: start: 20100407

REACTIONS (2)
  - Epilepsy [Unknown]
  - Hyponatraemia [Unknown]
